FAERS Safety Report 13721175 (Version 1)
Quarter: 2017Q3

REPORT INFORMATION
  Report Type: Spontaneous
  Country: US (occurrence: US)
  Receive Date: 20170706
  Receipt Date: 20170706
  Transmission Date: 20171127
  Serious: No
  Sender: FDA-Public Use
  Company Number: None

PATIENT
  Age: 50 Year
  Sex: Female
  Weight: 92.53 kg

DRUGS (7)
  1. TRAZODONE [Concomitant]
     Active Substance: TRAZODONE HYDROCHLORIDE
  2. FLUOXETINE [Concomitant]
     Active Substance: FLUOXETINE HYDROCHLORIDE
  3. VITAMIN D2 [Concomitant]
     Active Substance: ERGOCALCIFEROL
  4. AMLODIPINE BESYLATE. [Concomitant]
     Active Substance: AMLODIPINE BESYLATE
  5. CARVEDILOL. [Concomitant]
     Active Substance: CARVEDILOL
  6. HYDROCHLOROTHIAZIDE AND LISINOPRIL [Suspect]
     Active Substance: HYDROCHLOROTHIAZIDE\LISINOPRIL
     Indication: BLOOD PRESSURE MEASUREMENT
     Route: 048
     Dates: start: 20170228, end: 20170616
  7. TOPIRAMATE. [Concomitant]
     Active Substance: TOPIRAMATE

REACTIONS (9)
  - Pharyngeal oedema [None]
  - Nerve injury [None]
  - Dysphagia [None]
  - Facial pain [None]
  - Neck pain [None]
  - Deafness [None]
  - Muscle spasms [None]
  - Asthenia [None]
  - Cough [None]

NARRATIVE: CASE EVENT DATE: 20170228
